FAERS Safety Report 4785961-3 (Version None)
Quarter: 2005Q3

REPORT INFORMATION
  Report Type: 
  Country: None (occurrence: None)
  Receive Date: 20050930
  Receipt Date: 20050921
  Transmission Date: 20060218
  Serious: Yes (Life-Threatening)
  Sender: FDA-Public Use
  Company Number: 2005-09-1197

PATIENT
  Age: 40 Year
  Sex: Female

DRUGS (2)
  1. AERIUS (DESLORATADINE) TABLETS 'LIKE CLARINEX' [Suspect]
     Indication: URTICARIA
     Dosage: 5MG ORAL
     Route: 048
     Dates: start: 20050904, end: 20050906
  2. LEVONORGESTREL AND ETHINYL ESTRADIOL [Concomitant]

REACTIONS (1)
  - ANGIONEUROTIC OEDEMA [None]
